FAERS Safety Report 15145519 (Version 1)
Quarter: 2018Q3

REPORT INFORMATION
  Report Type: Spontaneous
  Country: GB (occurrence: GB)
  Receive Date: 20180713
  Receipt Date: 20180713
  Transmission Date: 20181010
  Serious: Yes (Other)
  Sender: FDA-Public Use
  Company Number: GB-009507513-1807GBR004337

PATIENT
  Sex: Female

DRUGS (1)
  1. TEMOZOLOMIDE. [Suspect]
     Active Substance: TEMOZOLOMIDE
     Indication: GLIOMA
     Route: 048

REACTIONS (5)
  - Anaphylactic reaction [Unknown]
  - Oedema [Unknown]
  - Exfoliative rash [Unknown]
  - Pruritus [Unknown]
  - Malaise [Unknown]
